FAERS Safety Report 4435246-X (Version None)
Quarter: 2004Q3

REPORT INFORMATION
  Report Type: 
  Country: None (occurrence: None)
  Receive Date: 20040827
  Receipt Date: 20040819
  Transmission Date: 20050211
  Serious: Yes (Death, Hospitalization)
  Sender: FDA-Public Use
  Company Number: SE-GLAXOSMITHKLINE-B0343374A

PATIENT
  Age: 80 Year
  Sex: Female

DRUGS (8)
  1. ZINACEF [Suspect]
     Dates: start: 20040522, end: 20040528
  2. BACTRIM [Suspect]
     Indication: PNEUMONIA
     Dosage: 2U PER DAY
     Route: 048
     Dates: start: 20040528, end: 20040601
  3. ISOPTIN [Concomitant]
  4. LANACRIST [Concomitant]
  5. FUROSEMIDE [Concomitant]
  6. ADALAT [Concomitant]
  7. TROMBYL [Concomitant]
  8. ALVEDON [Concomitant]

REACTIONS (10)
  - CEREBRAL INFARCTION [None]
  - CHILLS [None]
  - HAEMATOCHEZIA [None]
  - HEPATIC FAILURE [None]
  - INFECTION [None]
  - PYREXIA [None]
  - SKIN DISCOLOURATION [None]
  - TACHYCARDIA [None]
  - TACHYPNOEA [None]
  - TRANSAMINASES INCREASED [None]
